FAERS Safety Report 13500128 (Version 1)
Quarter: 2017Q2

REPORT INFORMATION
  Report Type: Spontaneous
  Country: US (occurrence: US)
  Receive Date: 20170501
  Receipt Date: 20170501
  Transmission Date: 20170830
  Serious: Yes (Disabling)
  Sender: FDA-Public Use
  Company Number: None

PATIENT
  Age: 36 Year
  Sex: Female
  Weight: 58.5 kg

DRUGS (3)
  1. SHAKEOLOGY [Concomitant]
  2. AMBIEN [Concomitant]
     Active Substance: ZOLPIDEM TARTRATE
  3. BOTOX [Suspect]
     Active Substance: ONABOTULINUMTOXINA
     Indication: SKIN COSMETIC PROCEDURE
     Dosage: QUANTITY:5 INJECTION(S);OTHER FREQUENCY:EVERY 3MO;?
     Route: 058
     Dates: start: 20160930, end: 20170330

REACTIONS (5)
  - Feeling jittery [None]
  - Fatigue [None]
  - Rash [None]
  - Feeling abnormal [None]
  - Paraesthesia [None]

NARRATIVE: CASE EVENT DATE: 20170330
